FAERS Safety Report 23440838 (Version 4)
Quarter: 2024Q2

REPORT INFORMATION
  Report Type: Spontaneous
  Country: US (occurrence: US)
  Receive Date: 20240125
  Receipt Date: 20240624
  Transmission Date: 20240715
  Serious: No
  Sender: FDA-Public Use
  Company Number: US-002147023-NVSC2024US015327

PATIENT
  Sex: Male

DRUGS (2)
  1. COSENTYX [Suspect]
     Active Substance: SECUKINUMAB
     Indication: Product used for unknown indication
     Dosage: 300 MG, QMO
     Route: 065
  2. COSENTYX [Suspect]
     Active Substance: SECUKINUMAB
     Dosage: 300 MG, (EVERY 28 DAYS)
     Route: 065

REACTIONS (6)
  - Product supply issue [Unknown]
  - Device deployment issue [Unknown]
  - Device malfunction [Unknown]
  - Product contamination physical [Unknown]
  - Product storage error [Unknown]
  - Accidental exposure to product [Unknown]
